FAERS Safety Report 5421084-8 (Version None)
Quarter: 2007Q3

REPORT INFORMATION
  Report Type: 
  Country: None (occurrence: None)
  Receive Date: 20070817
  Receipt Date: 20070802
  Transmission Date: 20080115
  Serious: Yes (Other)
  Sender: FDA-Public Use
  Company Number: 2007RR-09133

PATIENT
  Age: 14 Year
  Sex: Male

DRUGS (5)
  1. CLINDAMYCIN HCL [Suspect]
     Indication: ACNE
  2. BENZACLIN [Suspect]
     Indication: ACNE
     Dosage: TOPICAL
     Route: 061
  3. HYDROCHLOROTHIAZIDE [Concomitant]
  4. TRIAMTERENE (TRIAMTERENE) [Concomitant]
  5. METHYLPREDNISOLONE [Concomitant]

REACTIONS (8)
  - ARNOLD-CHIARI MALFORMATION [None]
  - DEAFNESS NEUROSENSORY [None]
  - DEAFNESS UNILATERAL [None]
  - DRUG TOXICITY [None]
  - HAEMANGIOMA [None]
  - HEADACHE [None]
  - SKIN IRRITATION [None]
  - TINNITUS [None]
